FAERS Safety Report 9005329 (Version 2)
Quarter: 2013Q1

REPORT INFORMATION
  Report Type: Spontaneous
  Country: US (occurrence: US)
  Receive Date: 20130108
  Receipt Date: 20130122
  Transmission Date: 20140127
  Serious: No
  Sender: FDA-Public Use
  Company Number: US-VERTEX PHARMACEUTICALS INC.-2013-000249

PATIENT
  Age: 54 Year
  Sex: Male
  Weight: 140 kg

DRUGS (9)
  1. INCIVEK [Suspect]
     Indication: HEPATITIS C
     Dosage: 1125 MG, BID
     Route: 048
     Dates: start: 20121201
  2. RIBAVIRIN [Suspect]
     Indication: HEPATITIS C
     Dosage: 3 DF, BID
     Dates: start: 20121201
  3. PEGASYS [Suspect]
     Indication: HEPATITIS C
     Dosage: 150 ?G, QW
     Route: 058
     Dates: start: 20121201
  4. PEGASYS [Suspect]
     Dosage: UNK
     Dates: start: 20121201
  5. METFORMIN [Concomitant]
  6. DOXEPIN [Concomitant]
  7. GLIPIZIDE [Concomitant]
  8. WELLBUTRIN [Concomitant]
  9. AMLODIPINE [Concomitant]

REACTIONS (5)
  - Weight decreased [Unknown]
  - Stomatitis [Not Recovered/Not Resolved]
  - Asthenia [Not Recovered/Not Resolved]
  - Rash papular [Recovered/Resolved]
  - Pruritus [Unknown]
